FAERS Safety Report 14519381 (Version 1)
Quarter: 2018Q1

REPORT INFORMATION
  Report Type: Spontaneous
  Country: JP (occurrence: JP)
  Receive Date: 20180212
  Receipt Date: 20180212
  Transmission Date: 20180509
  Serious: Yes (Hospitalization, Disabling, Other)
  Sender: FDA-Public Use
  Company Number: JP-JNJFOC-20180130238

PATIENT
  Age: 75 Year
  Sex: Female
  Weight: 45.9 kg

DRUGS (8)
  1. XARELTO [Suspect]
     Active Substance: RIVAROXABAN
     Indication: ATRIAL FIBRILLATION
     Route: 048
     Dates: start: 20160921, end: 20171228
  2. BIOFERMIN [Concomitant]
     Active Substance: BACILLUS SUBTILIS\LACTOBACILLUS ACIDOPHILUS\STREPTOCOCCUS FAECAIS
     Indication: DIARRHOEA
     Dosage: THROUGH TUBE
     Route: 050
     Dates: start: 20180110
  3. DIOVAN [Concomitant]
     Active Substance: VALSARTAN
     Route: 065
  4. OLMETEC [Concomitant]
     Active Substance: OLMESARTAN MEDOXOMIL
     Indication: HYPERTENSION
     Dosage: THROUGH TUBE
     Route: 050
     Dates: start: 20180106
  5. XARELTO [Suspect]
     Active Substance: RIVAROXABAN
     Indication: CEREBROVASCULAR ACCIDENT PROPHYLAXIS
     Route: 048
     Dates: start: 20160921, end: 20171228
  6. MAINTATE [Concomitant]
     Active Substance: BISOPROLOL FUMARATE
     Indication: HYPERTENSION
     Dosage: THROUGH TUBE
     Route: 050
     Dates: start: 20180106
  7. AMLODIPINE [Concomitant]
     Active Substance: AMLODIPINE BESYLATE
     Indication: HYPERTENSION
     Dosage: THROUGH TUBE
     Route: 050
     Dates: start: 20180101
  8. MUCOSTA [Concomitant]
     Active Substance: REBAMIPIDE
     Indication: GASTRIC ULCER
     Dosage: THROUGH TUBE
     Route: 050
     Dates: start: 20180125

REACTIONS (3)
  - Hemiplegia [Unknown]
  - Blood pressure inadequately controlled [Unknown]
  - Putamen haemorrhage [Recovered/Resolved with Sequelae]

NARRATIVE: CASE EVENT DATE: 20171227
